FAERS Safety Report 17495347 (Version 1)
Quarter: 2020Q1

REPORT INFORMATION
  Report Type: Spontaneous
  Country: CN (occurrence: CN)
  Receive Date: 20200303
  Receipt Date: 20200303
  Transmission Date: 20200409
  Serious: Yes (Hospitalization, Other)
  Sender: FDA-Public Use
  Company Number: CN-INCYTE CORPORATION-2020IN001869

PATIENT

DRUGS (1)
  1. JAKAVI [Suspect]
     Active Substance: RUXOLITINIB
     Indication: PRODUCT USED FOR UNKNOWN INDICATION
     Dosage: UNK
     Route: 048
     Dates: start: 20180811, end: 20190823

REACTIONS (3)
  - Drug ineffective [Unknown]
  - Gingival bleeding [Recovered/Resolved]
  - Platelet count decreased [Recovering/Resolving]
